FAERS Safety Report 24550196 (Version 2)
Quarter: 2024Q4

REPORT INFORMATION
  Report Type: Spontaneous
  Country: AT (occurrence: AT)
  Receive Date: 20241025
  Receipt Date: 20241129
  Transmission Date: 20250114
  Serious: Yes (Death)
  Sender: JOHNSON AND JOHNSON
  Company Number: AT-BAYER-2024A151547

PATIENT
  Age: 77 Year
  Sex: Female

DRUGS (1)
  1. ILOPROST [Suspect]
     Active Substance: ILOPROST
     Indication: Product used for unknown indication
     Dosage: 6 DF, QD
     Dates: start: 20230113

REACTIONS (1)
  - Death [Fatal]

NARRATIVE: CASE EVENT DATE: 20241018
